FAERS Safety Report 9184229 (Version 1)
Quarter: 2013Q1

REPORT INFORMATION
  Report Type: Spontaneous
  Country: US (occurrence: US)
  Receive Date: 20130322
  Receipt Date: 20130322
  Transmission Date: 20140127
  Serious: Yes (Other)
  Sender: FDA-Public Use
  Company Number: US-BRISTOL-MYERS SQUIBB COMPANY-16468720

PATIENT
  Age: 62 Year
  Sex: Male
  Weight: 64 kg

DRUGS (1)
  1. ERBITUX [Suspect]
     Indication: THROAT CANCER
     Dates: start: 20120312

REACTIONS (4)
  - Dyspnoea [Unknown]
  - Blood pressure decreased [Unknown]
  - Dry mouth [Unknown]
  - Rash [Unknown]
